FAERS Safety Report 9220950 (Version 1)
Quarter: 2013Q2

REPORT INFORMATION
  Report Type: Spontaneous
  Country: NL (occurrence: NL)
  Receive Date: 20130409
  Receipt Date: 20130409
  Transmission Date: 20140414
  Serious: Yes (Hospitalization, Congenital Anomaly)
  Sender: FDA-Public Use
  Company Number: NL-PFIZER INC-2013106408

PATIENT
  Sex: Male

DRUGS (3)
  1. SERTRALINE HCL [Suspect]
     Indication: DEPRESSION
     Dosage: 250 MG, 1X/DAY
     Route: 064
     Dates: start: 20030424, end: 200603
  2. XANAX RETARD [Concomitant]
     Dosage: 2 MG, 1X/DAY
     Route: 064
  3. XANAX RETARD [Concomitant]
     Dosage: 1 MG, 1X/DAY

REACTIONS (7)
  - Maternal exposure during pregnancy [Not Recovered/Not Resolved]
  - Off label use [Unknown]
  - Foetal growth restriction [Unknown]
  - Developmental delay [Not Recovered/Not Resolved]
  - Foetal distress syndrome [Unknown]
  - Amniotic fluid volume decreased [Unknown]
  - Drug withdrawal syndrome neonatal [Unknown]
